FAERS Safety Report 10482130 (Version 2)
Quarter: 2014Q4

REPORT INFORMATION
  Report Type: Spontaneous
  Country: US (occurrence: US)
  Receive Date: 20140929
  Receipt Date: 20141008
  Transmission Date: 20150528
  Serious: Yes (Hospitalization, Disabling)
  Sender: FDA-Public Use
  Company Number: CHPA2014US012924

PATIENT
  Age: 82 Year
  Sex: Female

DRUGS (1)
  1. VOLTAREN [Suspect]
     Active Substance: DICLOFENAC SODIUM
     Indication: ARTHRITIS
     Dosage: SMALL DAB, ONCE OR TWICE A DAY
     Route: 061
     Dates: start: 201405, end: 201406

REACTIONS (5)
  - Paralysis [Recovering/Resolving]
  - Contusion [Recovered/Resolved]
  - Underdose [Unknown]
  - Fall [Recovering/Resolving]
  - Abasia [Recovered/Resolved]

NARRATIVE: CASE EVENT DATE: 201406
